FAERS Safety Report 15117894 (Version 2)
Quarter: 2018Q3

REPORT INFORMATION
  Report Type: Report from Study
  Country: US (occurrence: US)
  Receive Date: 20180706
  Receipt Date: 20180831
  Transmission Date: 20181010
  Serious: Yes (Other)
  Sender: FDA-Public Use
  Company Number: US-JAZZ-2018-US-009790

PATIENT
  Age: 38 Year
  Sex: Female

DRUGS (23)
  1. ZANAFLEX [Concomitant]
     Active Substance: TIZANIDINE HYDROCHLORIDE
  2. DHEA [Concomitant]
     Active Substance: PRASTERONE
  3. VITAMIN D3 [Concomitant]
     Active Substance: CHOLECALCIFEROL
  4. DIAZEPAM. [Concomitant]
     Active Substance: DIAZEPAM
  5. SODIUM CHLORIDE. [Concomitant]
     Active Substance: SODIUM CHLORIDE
  6. SELENIUM [Concomitant]
     Active Substance: SELENIUM
  7. MODAFINIL. [Concomitant]
     Active Substance: MODAFINIL
  8. IRON [Concomitant]
     Active Substance: IRON
  9. KLONOPIN [Concomitant]
     Active Substance: CLONAZEPAM
  10. MELOXICAM. [Concomitant]
     Active Substance: MELOXICAM
  11. BOTOX COSMETIC [Concomitant]
     Active Substance: ONABOTULINUMTOXINA
  12. DIPHENOXYLATE/ATROPINE [Concomitant]
     Active Substance: ATROPINE\DIPHENOXYLATE
  13. XYREM [Suspect]
     Active Substance: SODIUM OXYBATE
     Indication: CATAPLEXY
  14. OXYCONTIN [Concomitant]
     Active Substance: OXYCODONE HYDROCHLORIDE
  15. MIDODRINE HCL [Concomitant]
     Active Substance: MIDODRINE HYDROCHLORIDE
  16. LEVOTHYROXINE. [Concomitant]
     Active Substance: LEVOTHYROXINE
  17. BENTYL [Concomitant]
     Active Substance: DICYCLOMINE HYDROCHLORIDE
  18. ASPIRIN EC [Concomitant]
     Active Substance: ASPIRIN
  19. XYREM [Suspect]
     Active Substance: SODIUM OXYBATE
     Indication: NARCOLEPSY
     Dosage: 2.25 G, BID
     Route: 048
     Dates: start: 20180615, end: 2018
  20. DIFLUCAN [Concomitant]
     Active Substance: FLUCONAZOLE
  21. COENZYME Q10 [Concomitant]
     Active Substance: UBIDECARENONE
  22. OXYCODONE AND ACETAMINOPHEN [Concomitant]
     Active Substance: ACETAMINOPHEN\OXYCODONE HYDROCHLORIDE
  23. BUTORPHANOL [Concomitant]
     Active Substance: BUTORPHANOL

REACTIONS (14)
  - Peripheral coldness [Not Recovered/Not Resolved]
  - Ocular discomfort [Recovering/Resolving]
  - Heart rate increased [Unknown]
  - Aphthous ulcer [Not Recovered/Not Resolved]
  - Blood sodium decreased [Unknown]
  - Feeling abnormal [Not Recovered/Not Resolved]
  - Hypersensitivity [Not Recovered/Not Resolved]
  - Anxiety [Not Recovered/Not Resolved]
  - Limb discomfort [Unknown]
  - Peripheral swelling [Not Recovered/Not Resolved]
  - Weight decreased [Not Recovered/Not Resolved]
  - Candida infection [Not Recovered/Not Resolved]
  - Oral discomfort [Not Recovered/Not Resolved]
  - Blood pressure increased [Unknown]

NARRATIVE: CASE EVENT DATE: 201806
